FAERS Safety Report 9800113 (Version 2)
Quarter: 2014Q1

REPORT INFORMATION
  Report Type: Spontaneous
  Country: US (occurrence: US)
  Receive Date: 20140106
  Receipt Date: 20140106
  Transmission Date: 20141002
  Serious: No
  Sender: FDA-Public Use
  Company Number: US-GILEAD-2010-0032571

PATIENT
  Age: 51 Year
  Sex: Female
  Weight: 35.83 kg

DRUGS (14)
  1. LETAIRIS [Suspect]
     Indication: PULMONARY ARTERIAL HYPERTENSION
     Route: 048
     Dates: start: 20101006
  2. LETAIRIS [Suspect]
     Route: 048
     Dates: start: 20100827
  3. ADCIRCA [Concomitant]
     Indication: PULMONARY ARTERIAL HYPERTENSION
     Dates: start: 20101007
  4. SINGULAIR [Concomitant]
  5. ADVAIR [Concomitant]
  6. PROTONIX [Concomitant]
  7. IMODIUM [Concomitant]
  8. ALIGN [Concomitant]
  9. TYLENOL W/CODEINE #3 [Concomitant]
  10. PREDNISONE [Concomitant]
  11. AMOXIL [Concomitant]
  12. MIACALCIN [Concomitant]
  13. CITRACAL + D [Concomitant]
  14. CALCIUM 600 W/VIT D [Concomitant]

REACTIONS (2)
  - Oedema [Unknown]
  - Weight increased [Unknown]
